FAERS Safety Report 4558789-7 (Version None)
Quarter: 2005Q1

REPORT INFORMATION
  Report Type: 
  Country: None (occurrence: None)
  Receive Date: 20050121
  Receipt Date: 20041014
  Transmission Date: 20050727
  Serious: Yes (Other)
  Sender: FDA-Public Use
  Company Number: ZA-GLAXOSMITHKLINE-B0348497A

PATIENT
  Age: 43 Year
  Sex: Female
  Weight: 99 kg

DRUGS (2)
  1. ZYBAN [Suspect]
     Indication: SMOKING CESSATION THERAPY
     Dosage: 1TAB TWICE PER DAY
     Route: 048
     Dates: start: 20040101
  2. REDUCTIL [Suspect]
     Indication: OBESITY
     Dosage: 15MG PER DAY
     Route: 048
     Dates: start: 20040401, end: 20040601

REACTIONS (2)
  - DRUG INTERACTION [None]
  - WEIGHT INCREASED [None]
